FAERS Safety Report 10038447 (Version 1)
Quarter: 2014Q1

REPORT INFORMATION
  Report Type: Spontaneous
  Country: US (occurrence: None)
  Receive Date: 20140306
  Receipt Date: 20140306
  Transmission Date: 20141002
  Serious: Yes (Disabling)
  Sender: FDA-Public Use
  Company Number: 163-21880-13064380

PATIENT
  Age: 81 Year
  Sex: Male

DRUGS (9)
  1. REVLIMID (LENALIDOMIDE) (CAPSULES) [Suspect]
     Indication: MYELODYSPLASTIC SYNDROME
     Dosage: TEMPORARILY INTERRUPTED
     Route: 048
     Dates: start: 20130529
  2. ASPIRIN (ACETYLSALICYLIC ACID) [Concomitant]
  3. ATORVASTATIN CALCIUM (ATORVASTATIN CALCIUM) [Concomitant]
  4. BUMETANIDE (BUMETANIDE) [Concomitant]
  5. CLONAZEPAM (CLONAZEPAM) [Concomitant]
  6. ESCITALOPRAM OXALATE (ESCITALOPRAM OXALATE) [Concomitant]
  7. FISH OIL (FISH OIL) [Concomitant]
  8. IRON (IRON) [Concomitant]
  9. KLOR-CON (POTASSIUM CHLORIDE) [Concomitant]

REACTIONS (2)
  - Loss of consciousness [None]
  - Dizziness [None]
